FAERS Safety Report 16951456 (Version 1)
Quarter: 2019Q4

REPORT INFORMATION
  Report Type: Spontaneous
  Country: HK (occurrence: HK)
  Receive Date: 20191023
  Receipt Date: 20191023
  Transmission Date: 20200122
  Serious: Yes (Other)
  Sender: FDA-Public Use
  Company Number: HK-ROCHE-2439835

PATIENT

DRUGS (3)
  1. OLAPARIB. [Concomitant]
     Active Substance: OLAPARIB
  2. AVASTIN [Suspect]
     Active Substance: BEVACIZUMAB
     Indication: OVARIAN CANCER STAGE III
     Dosage: MAINTENANCE (11 CYCLES)
     Route: 042
     Dates: start: 20150727, end: 20160222
  3. AVASTIN [Suspect]
     Active Substance: BEVACIZUMAB
     Dosage: 7 CYCLES
     Route: 042
     Dates: start: 20150202, end: 20150706

REACTIONS (1)
  - Disease recurrence [Unknown]
